FAERS Safety Report 8010029-2 (Version None)
Quarter: 2011Q4

REPORT INFORMATION
  Report Type: 
  Country: None (occurrence: None)
  Receive Date: 20111123
  Receipt Date: 20110802
  Transmission Date: 20120403
  Serious: No
  Sender: FDA-Public Use
  Company Number: 334546

PATIENT
  Age: 51 Year
  Sex: Female

DRUGS (3)
  1. METFORMIN HCL [Concomitant]
  2. JANUMET [Concomitant]
  3. VICTOZA [Suspect]
     Indication: TYPE 2 DIABETES MELLITUS
     Dosage: UNK, SUBCUTANEOUS
     Route: 058
     Dates: start: 20110802

REACTIONS (2)
  - DYSGEUSIA [None]
  - UNDERDOSE [None]
